FAERS Safety Report 5535767-2 (Version None)
Quarter: 2007Q4

REPORT INFORMATION
  Report Type: 
  Country: None (occurrence: None)
  Receive Date: 20071206
  Receipt Date: 20071130
  Transmission Date: 20080405
  Serious: Yes (Life-Threatening, Hospitalization)
  Sender: FDA-Public Use
  Company Number: CH-BAYER-200717398GPV

PATIENT
  Age: 62 Year
  Sex: Male

DRUGS (5)
  1. ASPIRIN [Suspect]
     Indication: CORONARY ANGIOPLASTY
     Dosage: UNIT DOSE: 100 MG
     Route: 048
     Dates: start: 20040528, end: 20071018
  2. AMLODIPINE [Concomitant]
     Indication: ESSENTIAL HYPERTENSION
     Dosage: TOTAL DAILY DOSE: 10 MG  UNIT DOSE: 10 MG
     Route: 048
  3. TORSEMIDE [Concomitant]
     Indication: ESSENTIAL HYPERTENSION
     Dosage: TOTAL DAILY DOSE: 10 MG  UNIT DOSE: 10 MG
     Route: 048
  4. SIMVASTATIN [Concomitant]
     Indication: HYPERCHOLESTEROLAEMIA
     Dosage: TOTAL DAILY DOSE: 40 MG  UNIT DOSE: 40 MG
     Route: 048
  5. COLCHICINE [Concomitant]
     Indication: GOUT
     Route: 065
     Dates: start: 20071020, end: 20071020

REACTIONS (4)
  - MYOCARDIAL INFARCTION [None]
  - REBOUND EFFECT [None]
  - RENAL FAILURE [None]
  - THROMBOSIS IN DEVICE [None]
